FAERS Safety Report 12155751 (Version 1)
Quarter: 2016Q1

REPORT INFORMATION
  Report Type: Spontaneous
  Country: US (occurrence: US)
  Receive Date: 20160307
  Receipt Date: 20160307
  Transmission Date: 20160526
  Serious: Yes (Hospitalization, Other)
  Sender: FDA-Public Use
  Company Number: US-BAYER-2016-039575

PATIENT
  Age: 61 Year
  Sex: Female
  Weight: 104.31 kg

DRUGS (6)
  1. LASIX [Concomitant]
     Active Substance: FUROSEMIDE
  2. VITAMIN B12 [Concomitant]
     Active Substance: CYANOCOBALAMIN
  3. LISINOPRIL. [Concomitant]
     Active Substance: LISINOPRIL
  4. ALEVE [Suspect]
     Active Substance: NAPROXEN SODIUM
     Indication: ARTHRITIS
     Dosage: 2 DF, QD IN THE MORNING
     Route: 048
     Dates: start: 2003
  5. ATENOLOL. [Concomitant]
     Active Substance: ATENOLOL
  6. BROVANA [Concomitant]
     Active Substance: ARFORMOTEROL TARTRATE

REACTIONS (3)
  - Gastric haemorrhage [Recovered/Resolved]
  - Gastric ulcer [None]
  - Product use issue [None]

NARRATIVE: CASE EVENT DATE: 2010
